FAERS Safety Report 8048717-4 (Version None)
Quarter: 2012Q1

REPORT INFORMATION
  Report Type: 
  Country: None (occurrence: None)
  Receive Date: 20120110
  Receipt Date: 20111228
  Transmission Date: 20120608
  Serious: Yes (Death, Hospitalization)
  Sender: FDA-Public Use
  Company Number: AXC-2011-000543

PATIENT
  Sex: Male

DRUGS (1)
  1. URSODIOL [Suspect]
     Indication: BILIARY TRACT DISORDER
     Dosage: ORAL
     Route: 048

REACTIONS (4)
  - MIXED HEPATOCELLULAR CHOLANGIOCARCINOMA [None]
  - HEPATIC NEOPLASM MALIGNANT RECURRENT [None]
  - HEPATIC FAILURE [None]
  - METASTASES TO LYMPH NODES [None]
